FAERS Safety Report 5241932-4 (Version None)
Quarter: 2007Q1

REPORT INFORMATION
  Report Type: 
  Country: None (occurrence: None)
  Receive Date: 20070220
  Receipt Date: 20070209
  Transmission Date: 20070707
  Serious: Yes (Hospitalization)
  Sender: FDA-Public Use
  Company Number: JP-PFIZER INC-2007011677

PATIENT
  Age: 25 Year
  Sex: Female

DRUGS (5)
  1. AZULFIDINE EN-TABS [Suspect]
     Indication: RHEUMATOID ARTHRITIS
     Dosage: DAILY DOSE:500MG
     Route: 048
     Dates: start: 20070110, end: 20070130
  2. MINOCYCLINE HCL [Suspect]
     Dosage: DAILY DOSE:200MG
     Route: 048
  3. MOBIC [Concomitant]
     Route: 048
     Dates: start: 20070110, end: 20070130
  4. POLAPREZINC [Concomitant]
     Route: 048
  5. ALL OTHER THERAPEUTIC PRODUCTS [Concomitant]
     Route: 048
     Dates: start: 20070110, end: 20070130

REACTIONS (5)
  - FACE OEDEMA [None]
  - LIVER DISORDER [None]
  - LYMPHADENOPATHY [None]
  - PYREXIA [None]
  - RASH [None]
